FAERS Safety Report 5047146-5 (Version None)
Quarter: 2006Q3

REPORT INFORMATION
  Report Type: 
  Country: None (occurrence: None)
  Receive Date: 20060703
  Receipt Date: 20060621
  Transmission Date: 20061208
  Serious: Yes (Life-Threatening, Hospitalization)
  Sender: FDA-Public Use
  Company Number: 2006081320

PATIENT
  Age: 50 Year
  Sex: Female

DRUGS (1)
  1. SUTENT [Suspect]
     Indication: GASTROINTESTINAL STROMAL TUMOUR
     Dosage: 50 MG (INTERVAL:  EVERY DAY),
     Dates: start: 20060101, end: 20060616

REACTIONS (4)
  - MUCOSAL INFLAMMATION [None]
  - MYOSITIS [None]
  - PETECHIAE [None]
  - PURPURA [None]
